FAERS Safety Report 5239473-3 (Version None)
Quarter: 2007Q1

REPORT INFORMATION
  Report Type: 
  Country: None (occurrence: None)
  Receive Date: 20070216
  Receipt Date: 20070209
  Transmission Date: 20070707
  Serious: Yes (Other)
  Sender: FDA-Public Use
  Company Number: IN-JNJFOC-20070202559

PATIENT
  Age: 5 Year
  Sex: Male

DRUGS (2)
  1. TOPAMAC [Suspect]
  2. TOPAMAC [Suspect]
     Indication: CONVULSION

REACTIONS (1)
  - HYPOTONIA [None]
